FAERS Safety Report 16951278 (Version 1)
Quarter: 2019Q4

REPORT INFORMATION
  Report Type: Spontaneous
  Country: US (occurrence: US)
  Receive Date: 20191022
  Receipt Date: 20191022
  Transmission Date: 20200122
  Serious: Yes (Other)
  Sender: FDA-Public Use
  Company Number: None

PATIENT
  Age: 67 Year
  Sex: Female
  Weight: 94.5 kg

DRUGS (1)
  1. TRULICITY [Suspect]
     Active Substance: DULAGLUTIDE
     Indication: DIABETES MELLITUS
     Dates: start: 20191013, end: 20191020

REACTIONS (7)
  - Swelling face [None]
  - Nausea [None]
  - Altered pitch perception [None]
  - Deafness [None]
  - Diarrhoea [None]
  - Hyperacusis [None]
  - Tinnitus [None]

NARRATIVE: CASE EVENT DATE: 20191022
